FAERS Safety Report 17294824 (Version 1)
Quarter: 2020Q1

REPORT INFORMATION
  Report Type: Spontaneous
  Country: GB (occurrence: GB)
  Receive Date: 20200121
  Receipt Date: 20200121
  Transmission Date: 20200409
  Serious: Yes (Death, Other)
  Sender: FDA-Public Use
  Company Number: NVSC2019GB011849

PATIENT
  Age: 40 Year
  Sex: Male

DRUGS (4)
  1. IVERMECTIN. [Suspect]
     Active Substance: IVERMECTIN
     Indication: ELEPHANTIASIS
     Dosage: 1 DF
     Route: 065
  2. DOXYCYCLINE. [Suspect]
     Active Substance: DOXYCYCLINE
     Indication: ELEPHANTIASIS
     Dosage: 1 UNK EXTENDED 6 WEEK COURSE OF THERAPY
     Route: 065
  3. DOXYCYCLINE. [Suspect]
     Active Substance: DOXYCYCLINE
     Indication: FILARIASIS LYMPHATIC
  4. IVERMECTIN. [Suspect]
     Active Substance: IVERMECTIN
     Indication: FILARIASIS LYMPHATIC

REACTIONS (7)
  - Renal atrophy [Fatal]
  - Drug ineffective for unapproved indication [Fatal]
  - Retroperitoneal fibrosis [Fatal]
  - Intentional product use issue [Fatal]
  - Multiple organ dysfunction syndrome [Fatal]
  - Drug ineffective [Unknown]
  - Vascular compression [Fatal]
